FAERS Safety Report 11543793 (Version 1)
Quarter: 2015Q3

REPORT INFORMATION
  Report Type: Spontaneous
  Country: US (occurrence: US)
  Receive Date: 20150924
  Receipt Date: 20150924
  Transmission Date: 20151125
  Serious: No
  Sender: FDA-Public Use
  Company Number: PHEH2014US023506

PATIENT
  Sex: Female

DRUGS (1)
  1. TEKTURNA [Suspect]
     Active Substance: ALISKIREN HEMIFUMARATE
     Indication: PRODUCT USED FOR UNKNOWN INDICATION
     Dosage: 300 MG, UNK
     Route: 048

REACTIONS (12)
  - Muscular weakness [Unknown]
  - Lethargy [Unknown]
  - Pain in extremity [Unknown]
  - Somnolence [Unknown]
  - Dizziness [Unknown]
  - Headache [Unknown]
  - Influenza [Unknown]
  - Dyspnoea [Unknown]
  - Confusional state [Unknown]
  - Abdominal pain upper [Unknown]
  - Back pain [Unknown]
  - Vision blurred [Unknown]
